FAERS Safety Report 8953093 (Version 2)
Quarter: 2012Q4

REPORT INFORMATION
  Report Type: Report from Study
  Country: US (occurrence: US)
  Receive Date: 20121205
  Receipt Date: 20121211
  Transmission Date: 20130627
  Serious: Yes (Hospitalization)
  Sender: FDA-Public Use
  Company Number: US-ACTELION-A-NJ2012-75474

PATIENT
  Age: 59 Year
  Sex: Female

DRUGS (4)
  1. TRACLEER [Suspect]
     Indication: PORTOPULMONARY HYPERTENSION
     Dosage: 62.5 mg, bid
     Route: 048
     Dates: start: 20100605, end: 20101025
  2. TRACLEER [Suspect]
     Dosage: 125 mg, bid
     Route: 048
     Dates: start: 20101026
  3. TRACLEER [Suspect]
     Dosage: 125 mg, bid
     Route: 048
     Dates: start: 20121201
  4. SILDENAFIL [Concomitant]

REACTIONS (2)
  - Sepsis [Recovering/Resolving]
  - Pollakiuria [Recovering/Resolving]
